FAERS Safety Report 26201126 (Version 2)
Quarter: 2025Q4

REPORT INFORMATION
  Report Type: Spontaneous
  Country: TR (occurrence: TR)
  Receive Date: 20251226
  Receipt Date: 20251229
  Transmission Date: 20260118
  Serious: Yes (Life-Threatening)
  Sender: SANDOZ
  Company Number: TR-002147023-NVSC2025TR195857

PATIENT

DRUGS (1)
  1. RITALIN [Suspect]
     Active Substance: METHYLPHENIDATE HYDROCHLORIDE
     Indication: Product used for unknown indication
     Dosage: UNK

REACTIONS (4)
  - Near death experience [Unknown]
  - Presyncope [Unknown]
  - Feeling abnormal [Unknown]
  - Tremor [Unknown]
